FAERS Safety Report 6338337-1 (Version None)
Quarter: 2009Q3

REPORT INFORMATION
  Report Type: 
  Country: None (occurrence: None)
  Receive Date: 20090902
  Receipt Date: 20090825
  Transmission Date: 20100115
  Serious: Yes (Death, Hospitalization)
  Sender: FDA-Public Use
  Company Number: ZA-GILEAD-2009-0023432

PATIENT
  Sex: Female

DRUGS (18)
  1. TRUVADA [Suspect]
     Indication: HIV INFECTION
     Route: 048
     Dates: start: 20090501, end: 20090701
  2. PURBAC [Suspect]
  3. STOCRIN [Concomitant]
  4. HEPARIN [Concomitant]
  5. ZYPREXA [Concomitant]
  6. NEUPOGEN [Concomitant]
  7. CLEXANE [Concomitant]
  8. NEXIUM [Concomitant]
  9. DIFLUCAN [Concomitant]
  10. MAXIPIME [Concomitant]
  11. SODIUM CHLORIDE [Concomitant]
  12. CLOPAMON [Concomitant]
  13. BUSCOPAN [Concomitant]
  14. FLAGYL [Concomitant]
  15. LASIX [Concomitant]
  16. VITAMIN K TAB [Concomitant]
  17. SOLU-MEDROL [Concomitant]
  18. BACTRIM [Concomitant]

REACTIONS (2)
  - PNEUMONIA [None]
  - RENAL FAILURE [None]
